FAERS Safety Report 9161370 (Version 2)
Quarter: 2013Q2

REPORT INFORMATION
  Report Type: Spontaneous
  Country: US (occurrence: US)
  Receive Date: 20130313
  Receipt Date: 20130403
  Transmission Date: 20140414
  Serious: No
  Sender: FDA-Public Use
  Company Number: US-009507513-1303USA006022

PATIENT
  Age: 72 Year
  Sex: Female

DRUGS (3)
  1. SINGULAIR [Suspect]
     Indication: HYPERSENSITIVITY
     Dosage: 10 MG, QD
     Route: 048
     Dates: start: 20130307
  2. SINGULAIR [Suspect]
     Indication: ASTHMA
  3. AZELASTINE HYDROCHLORIDE [Concomitant]

REACTIONS (2)
  - Vision blurred [Unknown]
  - Diarrhoea [Recovered/Resolved]
